FAERS Safety Report 23398464 (Version 1)
Quarter: 2024Q1

REPORT INFORMATION
  Report Type: Spontaneous
  Country: US (occurrence: US)
  Receive Date: 20240112
  Receipt Date: 20240112
  Transmission Date: 20240410
  Serious: No
  Sender: FDA-Public Use
  Company Number: US-GALDERMA-US2023020420

PATIENT

DRUGS (1)
  1. DIFFERIN GEL [Suspect]
     Active Substance: ADAPALENE
     Indication: Product used for unknown indication
     Dosage: 1 DOSAGE FORM
     Route: 061

REACTIONS (6)
  - Skin irritation [Unknown]
  - Skin burning sensation [Unknown]
  - Lacrimation increased [Unknown]
  - Eye irritation [Unknown]
  - Skin laceration [Unknown]
  - Drug ineffective [Unknown]
